FAERS Safety Report 9021849 (Version 1)
Quarter: 2013Q1

REPORT INFORMATION
  Report Type: Report from Study
  Country: CA (occurrence: CA)
  Receive Date: 20130118
  Receipt Date: 20130118
  Transmission Date: 20140127
  Serious: Yes (Death, Hospitalization)
  Sender: FDA-Public Use
  Company Number: CA-JNJFOC-20130103583

PATIENT
  Age: 55 None
  Sex: Male

DRUGS (1)
  1. REMICADE [Suspect]
     Indication: CROHN^S DISEASE
     Route: 042
     Dates: start: 201009, end: 20121224

REACTIONS (5)
  - Neoplasm [Unknown]
  - Abscess [Unknown]
  - Shock haemorrhagic [Fatal]
  - Gastrointestinal haemorrhage [Unknown]
  - Intestinal perforation [Unknown]
